FAERS Safety Report 8458314 (Version 2)
Quarter: 2013Q4

REPORT INFORMATION
  Report Type: Spontaneous
  Country: CN (occurrence: CN)
  Receive Date: 20120314
  Receipt Date: 20131104
  Transmission Date: 20140711
  Serious: Yes (Other)
  Sender: FDA-Public Use
  Company Number: PHHY2012CN021428

PATIENT
  Sex: Male

DRUGS (3)
  1. MIACALCIC [Suspect]
     Indication: OSTEOPOROSIS
     Dosage: 50 IU, QD
     Route: 030
     Dates: start: 20120301, end: 20120301
  2. MIACALCIC [Suspect]
     Indication: ARRHYTHMIA
  3. MIACALCIC [Suspect]
     Indication: MULTIPLE FRACTURES

REACTIONS (4)
  - Convulsion [Recovered/Resolved]
  - Muscle twitching [Recovered/Resolved]
  - Hypersensitivity [Recovered/Resolved]
  - Drug hypersensitivity [Recovered/Resolved]
